FAERS Safety Report 8341946-1 (Version None)
Quarter: 2012Q2

REPORT INFORMATION
  Report Type: 
  Country: None (occurrence: None)
  Receive Date: 20120507
  Receipt Date: 20120426
  Transmission Date: 20120825
  Serious: Yes (Other)
  Sender: FDA-Public Use
  Company Number: US-ASTRAZENECA-2012SE27218

PATIENT
  Age: 67 Year
  Sex: Female

DRUGS (4)
  1. CELEXA [Concomitant]
  2. LISINOPRIL [Suspect]
     Indication: BLOOD PRESSURE ABNORMAL
     Route: 048
     Dates: start: 20120301
  3. SEROQUEL XR [Suspect]
     Indication: BIPOLAR I DISORDER
     Route: 048
     Dates: start: 20110101
  4. LAMICTAL [Concomitant]

REACTIONS (2)
  - SUICIDAL IDEATION [None]
  - INTENTIONAL DRUG MISUSE [None]
